FAERS Safety Report 12004176 (Version 2)
Quarter: 2016Q1

REPORT INFORMATION
  Report Type: Spontaneous
  Country: IT (occurrence: IT)
  Receive Date: 20160204
  Receipt Date: 20160314
  Transmission Date: 20160526
  Serious: Yes (Other)
  Sender: FDA-Public Use
  Company Number: IT-ROXANE LABORATORIES, INC.-2016-RO-00194RO

PATIENT
  Age: 72 Year
  Sex: Female

DRUGS (5)
  1. POMALIDOMIDE [Suspect]
     Active Substance: POMALIDOMIDE
     Indication: PLASMA CELL LEUKAEMIA
     Dosage: 4 MG
     Route: 065
  2. DEXAMETHASONE TABLETS USP, 1.5 MG [Suspect]
     Active Substance: DEXAMETHASONE
     Indication: PLASMA CELL LEUKAEMIA
     Dosage: 40 MG
     Route: 065
  3. DEXAMETHASONE TABLETS USP, 1.5 MG [Suspect]
     Active Substance: DEXAMETHASONE
     Indication: PLASMA CELL MYELOMA
     Route: 065
  4. BENDAMUSTINE [Suspect]
     Active Substance: BENDAMUSTINE
     Indication: PLASMA CELL MYELOMA
     Route: 065
  5. LENALIDOMIDE [Suspect]
     Active Substance: LENALIDOMIDE
     Indication: PLASMA CELL MYELOMA
     Route: 065

REACTIONS (3)
  - Deep vein thrombosis [Unknown]
  - Fatigue [Unknown]
  - Neutropenia [Unknown]
